FAERS Safety Report 6914844-5 (Version None)
Quarter: 2010Q3

REPORT INFORMATION
  Report Type: 
  Country: None (occurrence: None)
  Receive Date: 20100809
  Receipt Date: 20100730
  Transmission Date: 20110219
  Serious: Yes (Other)
  Sender: FDA-Public Use
  Company Number: US-ABBOTT-10P-163-0634865-00

PATIENT
  Sex: Female
  Weight: 49.94 kg

DRUGS (13)
  1. HUMIRA [Suspect]
     Indication: RHEUMATOID ARTHRITIS
     Route: 058
     Dates: start: 20080207
  2. PROAIR HFA [Concomitant]
     Indication: LUNG DISORDER
     Dosage: PUMP
     Route: 055
  3. ACIPHEX [Concomitant]
     Indication: GASTRIC DISORDER
  4. ACIPHEX [Concomitant]
     Indication: GASTRITIS
  5. ASPIRIN [Concomitant]
     Indication: CARDIAC DISORDER
  6. CLONIDINE [Concomitant]
     Indication: HYPERTENSION
  7. DARVOCET [Concomitant]
     Indication: PAIN
  8. DIGOXIN [Concomitant]
     Indication: CARDIAC DISORDER
  9. FOLIC ACID [Concomitant]
     Indication: PRODUCT USED FOR UNKNOWN INDICATION
  10. NORVASC [Concomitant]
     Indication: BLOOD PRESSURE
  11. PLAQUENIL [Concomitant]
     Indication: RHEUMATOID ARTHRITIS
  12. REMERON [Concomitant]
     Indication: PRODUCT USED FOR UNKNOWN INDICATION
  13. INDURAL [Concomitant]
     Indication: PRODUCT USED FOR UNKNOWN INDICATION

REACTIONS (5)
  - MEDICAL DEVICE COMPLICATION [None]
  - OEDEMA PERIPHERAL [None]
  - PAIN IN EXTREMITY [None]
  - RENAL DISORDER [None]
  - WEIGHT DECREASED [None]
